FAERS Safety Report 6425083-9 (Version None)
Quarter: 2009Q4

REPORT INFORMATION
  Report Type: 
  Country: None (occurrence: None)
  Receive Date: 20091103
  Receipt Date: 20091022
  Transmission Date: 20100525
  Serious: Yes (Other)
  Sender: FDA-Public Use
  Company Number: US-PFIZER INC-2009281404

PATIENT
  Age: 24 Year
  Sex: Female
  Weight: 48.08 kg

DRUGS (9)
  1. ZYVOX [Suspect]
     Indication: PNEUMONIA STAPHYLOCOCCAL
     Dosage: 600 MG, 2X/DAY
     Route: 042
     Dates: start: 20090930, end: 20091008
  2. ACETAMINOPHEN [Concomitant]
     Indication: BODY TEMPERATURE
     Dosage: FREQUENCY: EVERY 6 HOURS AS NEEDED,
  3. ACETAMINOPHEN [Concomitant]
     Indication: PAIN
  4. ALBUTEROL [Concomitant]
     Dosage: UNK
  5. FAMOTIDINE [Concomitant]
     Dosage: 20 MG, 2X/DAY
     Dates: start: 20091001, end: 20091016
  6. FENTANYL [Concomitant]
     Route: 041
  7. LORAZEPAM [Concomitant]
     Route: 041
  8. TAMIFLU [Concomitant]
     Dates: start: 20090930, end: 20091005
  9. PROPOFOL [Concomitant]
     Route: 041
     Dates: start: 20090930, end: 20091002

REACTIONS (4)
  - HYPOVENTILATION [None]
  - LIVER FUNCTION TEST ABNORMAL [None]
  - PYREXIA [None]
  - WHITE BLOOD CELL COUNT ABNORMAL [None]
